FAERS Safety Report 16055016 (Version 2)
Quarter: 2019Q1

REPORT INFORMATION
  Report Type: Spontaneous
  Country: IR (occurrence: IR)
  Receive Date: 20190310
  Receipt Date: 20190327
  Transmission Date: 20190418
  Serious: Yes (Other)
  Sender: FDA-Public Use
  Company Number: IR-ROCHE-2278649

PATIENT
  Age: 67 Year
  Sex: Female

DRUGS (2)
  1. BEVACIZUMAB. [Suspect]
     Active Substance: BEVACIZUMAB
     Indication: CHOROIDAL NEOVASCULARISATION
     Dosage: 1.25 MG/0.05 ML IN BOTH EYES
     Route: 050
  2. BEVACIZUMAB. [Suspect]
     Active Substance: BEVACIZUMAB
     Indication: NEOVASCULAR AGE-RELATED MACULAR DEGENERATION

REACTIONS (2)
  - Macular hole [Unknown]
  - Blindness [Unknown]
